FAERS Safety Report 4907265-8 (Version None)
Quarter: 2006Q1

REPORT INFORMATION
  Report Type: 
  Country: None (occurrence: None)
  Receive Date: 20060207
  Receipt Date: 20060204
  Transmission Date: 20060701
  Serious: Yes (Hospitalization)
  Sender: FDA-Public Use
  Company Number: 218725

PATIENT
  Age: 58 Year
  Sex: Female

DRUGS (3)
  1. RITUXAN(RITUXIMAB) CONC FOR SOLUTION FOR INFUSION [Suspect]
     Indication: DIFFUSE LARGE B-CELL LYMPHOMA
     Dates: start: 20051013
  2. ALLOPURINOL [Concomitant]
  3. SODIUM BICARBONATE IN PLASTIC CONTAINER [Concomitant]

REACTIONS (4)
  - ACUTE PRERENAL FAILURE [None]
  - RENAL FAILURE ACUTE [None]
  - TUMOUR LYSIS SYNDROME [None]
  - WHEEZING [None]
